FAERS Safety Report 24454145 (Version 2)
Quarter: 2024Q4

REPORT INFORMATION
  Report Type: Report from Study
  Country: US (occurrence: US)
  Receive Date: 20241017
  Receipt Date: 20241018
  Transmission Date: 20250114
  Serious: No
  Sender: ROCHE
  Company Number: US-ROCHE-3470301

PATIENT
  Age: 49 Year
  Sex: Female

DRUGS (4)
  1. RITUXAN [Suspect]
     Active Substance: RITUXIMAB
     Indication: Arteritis
     Dosage: INFUSE 1000MG, DAY1 AND DAY 15, EVERY 6 MONTH(S)
     Route: 042
     Dates: start: 20221116
  2. RITUXAN [Suspect]
     Active Substance: RITUXIMAB
     Dosage: INFUSE 1000MG, INTRAVENOUS INSTILL INTO 0.9% NS LO TOTAL 250ML. BEGIN AT 100MG/HR, INCREASE BY 100MG
     Route: 042
     Dates: start: 20221129
  3. RITUXAN [Suspect]
     Active Substance: RITUXIMAB
     Dosage: INFUSE 1000MG, INTRAVENOUS INTO 0.9%NS TO MAKE TOTAL 250ML. BEGIN AT 50MG/HR, INCREASING BY 50MG/HR
     Route: 042
     Dates: start: 20221117
  4. SODIUM CHLORIDE [Concomitant]
     Active Substance: SODIUM CHLORIDE

REACTIONS (1)
  - COVID-19 [Not Recovered/Not Resolved]

NARRATIVE: CASE EVENT DATE: 20231130
